FAERS Safety Report 10470485 (Version 1)
Quarter: 2014Q3

REPORT INFORMATION
  Report Type: Spontaneous
  Country: US (occurrence: None)
  Receive Date: 20140916
  Receipt Date: 20140916
  Transmission Date: 20150326
  Serious: Yes (Other)
  Sender: FDA-Public Use
  Company Number: 2014GMK009478

PATIENT
  Age: 84 Year
  Sex: Female
  Weight: 88 kg

DRUGS (7)
  1. LEVOTHYROXINE (LEVOTHYROXINE) [Concomitant]
     Active Substance: LEVOTHYROXINE
  2. ALBUTEROL /00139501/ (SALBUTAMOL) INHALER [Concomitant]
  3. MONTELUKAST [Concomitant]
     Active Substance: MONTELUKAST SODIUM
  4. ATORVASTATIN (ATORVASTATIN) [Concomitant]
     Active Substance: ATORVASTATIN
  5. MELOXICAM (MELOXICAM) UNKNOWN [Suspect]
     Active Substance: MELOXICAM
     Indication: BACK PAIN
  6. FLUTICASONE PROPIONATE W/SALMETEROL (FLUTICASONE PROPIONATE, SALMETEROL) INHALER? [Concomitant]
  7. TELMISARTAN (TELMISARTAN) [Concomitant]
     Active Substance: TELMISARTAN

REACTIONS (6)
  - Contusion [None]
  - Faeces discoloured [None]
  - Petechiae [None]
  - Thrombocytopenia [None]
  - Hypersensitivity [None]
  - Idiosyncratic drug reaction [None]
